FAERS Safety Report 6025738-4 (Version None)
Quarter: 2009Q1

REPORT INFORMATION
  Report Type: 
  Country: None (occurrence: None)
  Receive Date: 20090101
  Receipt Date: 20081223
  Transmission Date: 20090719
  Serious: Yes (Hospitalization, Other)
  Sender: FDA-Public Use
  Company Number: CA-ELI_LILLY_AND_COMPANY-CA200812005681

PATIENT
  Age: 77 Year
  Sex: Male

DRUGS (10)
  1. FORTEO [Suspect]
     Indication: OSTEOPOROSIS
     Dosage: 20 UG, DAILY (1/D)
     Dates: start: 20080313, end: 20081021
  2. FORTEO [Suspect]
     Dosage: 20 UG, DAILY (1/D)
     Dates: start: 20081120, end: 20081220
  3. HYDRODIURIL [Concomitant]
  4. ASAPHEN [Concomitant]
  5. ATIVAN [Concomitant]
  6. PLAQUENIL [Concomitant]
  7. PHYLLOCONTIN [Concomitant]
  8. VENTOLIN [Concomitant]
  9. SEREVENT [Concomitant]
  10. PULMICORT-100 [Concomitant]

REACTIONS (1)
  - CEREBROVASCULAR ACCIDENT [None]
